FAERS Safety Report 14992849 (Version 2)
Quarter: 2018Q2

REPORT INFORMATION
  Report Type: Spontaneous
  Country: US (occurrence: US)
  Receive Date: 20180609
  Receipt Date: 20180624
  Transmission Date: 20180711
  Serious: No
  Sender: FDA-Public Use
  Company Number: US-JNJFOC-20180534170

PATIENT
  Sex: Male

DRUGS (3)
  1. ZYTIGA [Suspect]
     Active Substance: ABIRATERONE ACETATE
     Indication: PRODUCT USED FOR UNKNOWN INDICATION
     Route: 048
     Dates: start: 201702
  2. PREDNISONE. [Concomitant]
     Active Substance: PREDNISONE
     Dosage: 1 - 5 MG
     Route: 065
     Dates: start: 20180418
  3. PREDNISONE. [Concomitant]
     Active Substance: PREDNISONE
     Dosage: 1 - 5 MG
     Route: 065
     Dates: start: 201702

REACTIONS (2)
  - Memory impairment [Recovered/Resolved]
  - Therapy cessation [Unknown]
